FAERS Safety Report 24955476 (Version 1)
Quarter: 2025Q1

REPORT INFORMATION
  Report Type: Spontaneous
  Country: US (occurrence: None)
  Receive Date: 20250210
  Receipt Date: 20250210
  Transmission Date: 20250409
  Serious: Yes (Other)
  Sender: FDA-CTU
  Company Number: None

PATIENT
  Age: 51 Year
  Sex: Female
  Weight: 124.65 kg

DRUGS (4)
  1. TIRZEPATIDE [Suspect]
     Active Substance: TIRZEPATIDE
     Indication: Obesity
     Route: 058
     Dates: start: 20241229, end: 20250202
  2. TYLENOL [Concomitant]
     Active Substance: ACETAMINOPHEN
  3. IBUPROFEN [Concomitant]
     Active Substance: IBUPROFEN
  4. cetirize [Concomitant]

REACTIONS (10)
  - Injection site reaction [None]
  - Paraesthesia oral [None]
  - Paraesthesia [None]
  - Dizziness [None]
  - Anxiety [None]
  - Therapy non-responder [None]
  - Dyspepsia [None]
  - Fatigue [None]
  - Malaise [None]
  - Product substitution issue [None]

NARRATIVE: CASE EVENT DATE: 20250202
